FAERS Safety Report 23356179 (Version 4)
Quarter: 2024Q1

REPORT INFORMATION
  Report Type: Spontaneous
  Country: CA (occurrence: CA)
  Receive Date: 20240102
  Receipt Date: 20240323
  Transmission Date: 20240410
  Serious: Yes (Hospitalization, Other)
  Sender: FDA-Public Use
  Company Number: CA-CELLTRION INC.-2023CA025054

PATIENT

DRUGS (5)
  1. INFLECTRA [Suspect]
     Active Substance: INFLIXIMAB-DYYB
     Indication: Crohn^s disease
     Dosage: 500 MG INDUCTION  WEEK 0, 2 AND 6 MAINTENANCE: Q 8 WEEKS
     Route: 042
     Dates: start: 20230720
  2. INFLECTRA [Suspect]
     Active Substance: INFLIXIMAB-DYYB
     Dosage: 500 MG INDUCTION  WEEK 0, 2 AND 6 MAINTENANCE: Q 8 WEEKS;
     Route: 042
     Dates: start: 20231027
  3. INFLECTRA [Suspect]
     Active Substance: INFLIXIMAB-DYYB
     Dosage: 500 MG INDUCTION  WEEK 0, 2 AND 6 MAINTENANCE: Q 8 WEEKS;(500MG, 8 WEEKS)(500MG, EVERY 6 WEEKS)
     Route: 042
     Dates: start: 20231222
  4. INFLECTRA [Suspect]
     Active Substance: INFLIXIMAB-DYYB
     Dosage: 500 MG, EVERY 6 WEEK
     Route: 042
     Dates: start: 20240202
  5. PREDNISONE [Concomitant]
     Active Substance: PREDNISONE
     Dosage: 20 MG UNKNOWN FREQUENCY
     Route: 065
     Dates: start: 20230531

REACTIONS (8)
  - Ileostomy [Unknown]
  - Dehydration [Unknown]
  - Cystitis [Recovering/Resolving]
  - Disease recurrence [Recovering/Resolving]
  - Fistula [Unknown]
  - Condition aggravated [Not Recovered/Not Resolved]
  - Weight decreased [Not Recovered/Not Resolved]
  - Off label use [Unknown]

NARRATIVE: CASE EVENT DATE: 20230101
